FAERS Safety Report 7585408-8 (Version None)
Quarter: 2011Q2

REPORT INFORMATION
  Report Type: 
  Country: None (occurrence: None)
  Receive Date: 20110624
  Receipt Date: 20110613
  Transmission Date: 20111010
  Serious: Yes (Life-Threatening, Hospitalization, Other)
  Sender: FDA-Public Use
  Company Number: TRP_07534_2011

PATIENT
  Sex: Female
  Weight: 91.6266 kg

DRUGS (8)
  1. VITAMIN D [Concomitant]
  2. HYDROCHLOROTHIAZIDE [Concomitant]
  3. OMEPRAZOLE [Concomitant]
  4. INFERGEN [Suspect]
     Indication: HEPATITIS C
     Dosage: (15 UG QD SUBCUTANEOUS)
     Route: 058
     Dates: start: 20110118, end: 20110302
  5. IBUPROFEN [Concomitant]
  6. TYLENOL-500 [Concomitant]
  7. RIBAVIRIN [Suspect]
     Indication: HEPATITIS C
     Dosage: (1200 MG, DAILY ORAL)
     Route: 048
     Dates: start: 20110118, end: 20110302
  8. AMLODIPINE [Concomitant]

REACTIONS (2)
  - DYSGEUSIA [None]
  - HYDROCEPHALUS [None]
